FAERS Safety Report 10077460 (Version 1)
Quarter: 2014Q2

REPORT INFORMATION
  Report Type: Spontaneous
  Country: US (occurrence: US)
  Receive Date: 20140414
  Receipt Date: 20140414
  Transmission Date: 20141212
  Serious: No
  Sender: FDA-Public Use
  Company Number: US-009507513-1403USA004515

PATIENT
  Age: 55 Year
  Sex: Female

DRUGS (2)
  1. CLARITIN-D-24 [Suspect]
     Indication: UPPER-AIRWAY COUGH SYNDROME
     Dosage: 10 MG, ONCE
     Route: 048
     Dates: start: 20140301, end: 20140301
  2. CLARITIN-D-24 [Suspect]
     Indication: COUGH

REACTIONS (3)
  - Blood pressure increased [Recovered/Resolved]
  - Feeling abnormal [Recovered/Resolved]
  - Off label use [Unknown]
